FAERS Safety Report 12526585 (Version 2)
Quarter: 2016Q3

REPORT INFORMATION
  Report Type: Report from Study
  Country: BR (occurrence: BR)
  Receive Date: 20160705
  Receipt Date: 20160711
  Transmission Date: 20161109
  Serious: Yes (Death, Hospitalization)
  Sender: FDA-Public Use
  Company Number: PHHY2016BR077430

PATIENT
  Sex: Female
  Weight: 72 kg

DRUGS (1)
  1. DIOVAN AMLO FIX [Suspect]
     Active Substance: AMLODIPINE\VALSARTAN
     Indication: BLOOD PRESSURE ABNORMAL
     Dosage: 2 DF (5 MG AMLODIPINE AND 320 MG VALSARTAN), QD (2 TABLETS A DAY)
     Route: 048

REACTIONS (4)
  - Death [Fatal]
  - Blood pressure inadequately controlled [Unknown]
  - Drug ineffective [Unknown]
  - Blood pressure increased [Unknown]
